FAERS Safety Report 8529618-1 (Version None)
Quarter: 2012Q3

REPORT INFORMATION
  Report Type: 
  Country: None (occurrence: None)
  Receive Date: 20120723
  Receipt Date: 20120719
  Transmission Date: 20120928
  Serious: Yes (Death, Hospitalization)
  Sender: FDA-Public Use
  Company Number: IE-ELI_LILLY_AND_COMPANY-IE201205009502

PATIENT
  Sex: Female

DRUGS (14)
  1. LYRICA [Concomitant]
  2. ACETAMINOPHEN W/ CODEINE [Concomitant]
  3. FOSAMAX [Concomitant]
  4. ZYDOL                              /00599202/ [Concomitant]
  5. MOVIPREP [Concomitant]
  6. ALDACTONE [Concomitant]
  7. WARFARIN SODIUM [Concomitant]
  8. ZIMOVANE [Concomitant]
  9. LANOXIN [Concomitant]
  10. FUROSEMIDE [Concomitant]
  11. CALCICHEW-D3 FORTE [Concomitant]
  12. GALFER [Concomitant]
  13. ACETAMINOPHEN [Concomitant]
  14. FORTEO [Suspect]
     Indication: OSTEOPOROSIS
     Dosage: 20 UG, UNK
     Route: 058
     Dates: start: 20120420

REACTIONS (2)
  - CARDIAC FAILURE [None]
  - MITRAL VALVE INCOMPETENCE [None]
